FAERS Safety Report 21418607 (Version 2)
Quarter: 2022Q4

REPORT INFORMATION
  Report Type: Report from Study
  Country: IL (occurrence: IL)
  Receive Date: 20221006
  Receipt Date: 20221027
  Transmission Date: 20230112
  Serious: Yes (Hospitalization)
  Sender: FDA-Public Use
  Company Number: IL-TAKEDA-2022TUS070373

PATIENT
  Age: 17 Year
  Sex: Female

DRUGS (15)
  1. VELAGLUCERASE ALFA [Suspect]
     Active Substance: VELAGLUCERASE ALFA
     Indication: Gaucher^s disease
     Dosage: 60 INTERNATIONAL UNIT/KILOGRAM, Q2WEEKS
     Route: 065
     Dates: start: 20220608
  2. NAPROXEN [Concomitant]
     Active Substance: NAPROXEN
     Indication: Aortic valve repair
     Dosage: UNK
     Route: 065
     Dates: start: 20220906, end: 20220919
  3. COLCHICINE [Concomitant]
     Active Substance: COLCHICINE
     Indication: Aortic valve repair
     Dosage: UNK
     Route: 065
     Dates: start: 20220906, end: 20220919
  4. BISOPROLOL FUMARATE [Concomitant]
     Active Substance: BISOPROLOL FUMARATE
     Indication: Aortic valve repair
     Dosage: 10 MILLIGRAM, QD
     Route: 048
     Dates: start: 20220906, end: 20221006
  5. Fusid [Concomitant]
     Indication: Aortic valve repair
     Dosage: 20 MILLIGRAM, QD
     Route: 048
     Dates: start: 20220906, end: 20221006
  6. OMEPRAZOLE [Concomitant]
     Active Substance: OMEPRAZOLE
     Indication: Aortic valve repair
     Dosage: 40 MILLIGRAM, QD
     Route: 048
     Dates: start: 20220906, end: 20221006
  7. COUMADIN [Concomitant]
     Active Substance: WARFARIN SODIUM
     Indication: Aortic valve repair
     Dosage: 7.5 MILLIGRAM, SINGLE
     Route: 048
     Dates: start: 20220918, end: 20220918
  8. COUMADIN [Concomitant]
     Active Substance: WARFARIN SODIUM
     Dosage: 5 MILLIGRAM, QD
     Route: 048
     Dates: start: 20220919, end: 20220920
  9. PREDNISONE [Concomitant]
     Active Substance: PREDNISONE
     Indication: Aortic valve repair
     Dosage: 15 MILLIGRAM, QD
     Route: 048
     Dates: start: 20220919, end: 20220921
  10. PREDNISONE [Concomitant]
     Active Substance: PREDNISONE
     Dosage: 10 MILLIGRAM, QD
     Route: 048
     Dates: start: 20220922, end: 20220924
  11. PREDNISONE [Concomitant]
     Active Substance: PREDNISONE
     Dosage: 5 MILLIGRAM, QD
     Route: 048
     Dates: start: 20220924, end: 20220926
  12. ROCEPHIN [Concomitant]
     Active Substance: CEFTRIAXONE SODIUM
     Indication: Lower respiratory tract infection
     Dosage: UNK
     Route: 065
     Dates: start: 20220921, end: 20220923
  13. AZICARE [Concomitant]
     Indication: Lower respiratory tract infection
     Dosage: UNK
     Route: 065
     Dates: start: 20220921, end: 20220923
  14. MEROPENEM [Concomitant]
     Active Substance: MEROPENEM
     Indication: Lower respiratory tract infection
     Dosage: UNK
     Route: 065
     Dates: start: 20220924
  15. VANCOMYCIN [Concomitant]
     Active Substance: VANCOMYCIN
     Indication: Lower respiratory tract infection
     Dosage: UNK
     Route: 065
     Dates: start: 20220924

REACTIONS (1)
  - Lower respiratory tract infection [Recovered/Resolved]

NARRATIVE: CASE EVENT DATE: 20220921
